FAERS Safety Report 23438388 (Version 1)
Quarter: 2024Q1

REPORT INFORMATION
  Report Type: Spontaneous
  Country: DE (occurrence: DE)
  Receive Date: 20240124
  Receipt Date: 20240124
  Transmission Date: 20240409
  Serious: Yes (Hospitalization)
  Sender: FDA-Public Use
  Company Number: DE-SAMSUNG BIOEPIS-SB-2023-26991

PATIENT
  Age: 72 Year
  Sex: Female

DRUGS (3)
  1. ETANERCEPT [Suspect]
     Active Substance: ETANERCEPT
     Indication: Rheumatoid arthritis
     Dosage: 50.000MG
     Route: 065
     Dates: start: 201801, end: 202107
  2. METHOTREXATE [Suspect]
     Active Substance: METHOTREXATE
     Indication: Product used for unknown indication
     Dosage: 10.000MG
     Route: 065
  3. METHOTREXATE [Suspect]
     Active Substance: METHOTREXATE
     Dosage: 5.000MG
     Route: 065

REACTIONS (3)
  - Impaired healing [Unknown]
  - Joint arthroplasty [Recovered/Resolved]
  - Postoperative wound infection [Not Recovered/Not Resolved]

NARRATIVE: CASE EVENT DATE: 20220104
